FAERS Safety Report 14659855 (Version 1)
Quarter: 2018Q1

REPORT INFORMATION
  Report Type: Spontaneous
  Country: US (occurrence: US)
  Receive Date: 20180320
  Receipt Date: 20180320
  Transmission Date: 20180509
  Serious: Yes (Other)
  Sender: FDA-Public Use
  Company Number: US-009507513-1803USA004623

PATIENT
  Age: 40 Year
  Sex: Female
  Weight: 79.37 kg

DRUGS (1)
  1. NEXPLANON [Suspect]
     Active Substance: ETONOGESTREL
     Indication: CONTRACEPTION
     Dosage: 1 DF, UNK
     Route: 059
     Dates: start: 20161112, end: 20180203

REACTIONS (11)
  - Caesarean section [Recovered/Resolved]
  - Dyspnoea [Recovering/Resolving]
  - Device dislocation [Recovered/Resolved]
  - Implant site discolouration [Recovering/Resolving]
  - Device breakage [Recovered/Resolved]
  - Hypoaesthesia [Recovering/Resolving]
  - Exposure during pregnancy [Recovered/Resolved]
  - Sleep disorder [Recovering/Resolving]
  - Neck pain [Recovering/Resolving]
  - Implant site pain [Recovering/Resolving]
  - Complication of device removal [Recovered/Resolved]

NARRATIVE: CASE EVENT DATE: 20161112
